FAERS Safety Report 20810391 (Version 1)
Quarter: 2022Q2

REPORT INFORMATION
  Report Type: Spontaneous
  Country: US (occurrence: US)
  Receive Date: 20220510
  Receipt Date: 20220510
  Transmission Date: 20220720
  Serious: No
  Sender: FDA-Public Use
  Company Number: US-OYSTER POINT PHARMA, INC.-2022OYS00311

PATIENT
  Age: 50 Year
  Sex: Female

DRUGS (8)
  1. TYRVAYA [Suspect]
     Active Substance: VARENICLINE TARTRATE
     Indication: Dry eye
     Dosage: 1 SPRAY, BOTH NOSTRILS, 2X/DAY
     Route: 045
     Dates: start: 202203, end: 20220318
  2. XIIDRA [Concomitant]
     Active Substance: LIFITEGRAST
  3. TRI-SPRINTEC [Concomitant]
     Active Substance: ETHINYL ESTRADIOL\NORGESTIMATE
  4. VITAMINS [Concomitant]
     Active Substance: VITAMINS
  5. VITAMIN D AND C [Concomitant]
  6. OMEGA 3/TUNA OIL [Concomitant]
  7. SYSTANE (HYPROMELLOSE 2910 (4000 MPA.S)) [Concomitant]
     Active Substance: HYPROMELLOSE 2910 (4000 MPA.S)
  8. AUTOLOGOUS SERUM TEARS [Concomitant]

REACTIONS (5)
  - Laryngitis [Recovered/Resolved]
  - Pharyngeal swelling [Recovered/Resolved]
  - Aphonia [Recovered/Resolved]
  - Dysphagia [Recovered/Resolved]
  - Oropharyngeal pain [Recovered/Resolved]

NARRATIVE: CASE EVENT DATE: 20220301
